FAERS Safety Report 7739873-3 (Version None)
Quarter: 2011Q3

REPORT INFORMATION
  Report Type: 
  Country: None (occurrence: None)
  Receive Date: 20110909
  Receipt Date: 20110902
  Transmission Date: 20111222
  Serious: Yes (Other)
  Sender: FDA-Public Use
  Company Number: PHEH2011US02300

PATIENT
  Age: 58 Year
  Sex: Female

DRUGS (1)
  1. ESTRADERM [Suspect]
     Dosage: 0.05 MG, UNK
     Route: 062

REACTIONS (6)
  - OEDEMA PERIPHERAL [None]
  - VISUAL IMPAIRMENT [None]
  - CARDIAC DISORDER [None]
  - BLOOD PRESSURE INCREASED [None]
  - PAIN IN EXTREMITY [None]
  - FLUID RETENTION [None]
